FAERS Safety Report 6012708-5 (Version None)
Quarter: 2008Q4

REPORT INFORMATION
  Report Type: 
  Country: None (occurrence: None)
  Receive Date: 20081218
  Receipt Date: 20081212
  Transmission Date: 20090506
  Serious: Yes (Hospitalization)
  Sender: FDA-Public Use
  Company Number: US-AMGEN-US230941

PATIENT
  Sex: Male

DRUGS (2)
  1. ENBREL [Suspect]
     Indication: RHEUMATOID ARTHRITIS
     Route: 058
     Dates: start: 19981101
  2. ENBREL [Suspect]
     Route: 058

REACTIONS (15)
  - ABSCESS LIMB [None]
  - AMPUTATION REVISION [None]
  - ARTERIAL BYPASS OPERATION [None]
  - ARTHRALGIA [None]
  - INFECTION [None]
  - INJECTION SITE PAIN [None]
  - JOINT SWELLING [None]
  - OSTEOMYELITIS [None]
  - POOR PERIPHERAL CIRCULATION [None]
  - PYREXIA [None]
  - RHEUMATOID ARTHRITIS [None]
  - ROTATOR CUFF SYNDROME [None]
  - STAPHYLOCOCCAL INFECTION [None]
  - SYNOVIAL CYST [None]
  - TOE AMPUTATION [None]
